FAERS Safety Report 25618049 (Version 1)
Quarter: 2025Q3

REPORT INFORMATION
  Report Type: Spontaneous
  Country: GB (occurrence: GB)
  Receive Date: 20250729
  Receipt Date: 20250729
  Transmission Date: 20251020
  Serious: Yes (Other)
  Sender: ELI LILLY AND COMPANY
  Company Number: None

PATIENT
  Age: 64 Year
  Sex: Female
  Weight: 73 kg

DRUGS (2)
  1. MOUNJARO [Suspect]
     Active Substance: TIRZEPATIDE
     Indication: Weight control
     Dosage: 2.5 MG, WEEKLY (1/W)
     Route: 065
     Dates: start: 20250602, end: 20250605
  2. SERTRALINE [Concomitant]
     Active Substance: SERTRALINE HYDROCHLORIDE
     Indication: Depression

REACTIONS (9)
  - Hypersensitivity [Recovered/Resolved with Sequelae]
  - Pain in extremity [Recovered/Resolved]
  - Chest pain [Recovered/Resolved]
  - Cholelithiasis [Unknown]
  - Arthralgia [Recovered/Resolved]
  - Renal impairment [Recovering/Resolving]
  - Abdominal pain [Recovered/Resolved]
  - Nausea [Unknown]
  - Vomiting [Unknown]

NARRATIVE: CASE EVENT DATE: 20250602
